FAERS Safety Report 6475316-8 (Version None)
Quarter: 2009Q4

REPORT INFORMATION
  Report Type: 
  Country: None (occurrence: None)
  Receive Date: 20091204
  Receipt Date: 20090505
  Transmission Date: 20100525
  Serious: Yes (Hospitalization)
  Sender: FDA-Public Use
  Company Number: FR-ELI_LILLY_AND_COMPANY-FR200904001624

PATIENT
  Age: 73 Year
  Sex: Female

DRUGS (12)
  1. BYETTA [Suspect]
     Indication: TYPE 2 DIABETES MELLITUS
     Dosage: 5 UG, 2/D
     Route: 058
     Dates: end: 20081001
  2. BYETTA [Interacting]
     Dosage: 10 UG, 2/D
     Route: 058
     Dates: start: 20081001, end: 20090320
  3. TRIATEC [Interacting]
     Indication: HYPERTENSION
     Dosage: 10 MG, DAILY (1/D)
     Route: 048
     Dates: end: 20090320
  4. COOLMETEC [Interacting]
     Indication: HYPERTENSION
     Dosage: 20 MG, DAILY (1/D)
     Route: 048
  5. ALDACTONE [Interacting]
     Indication: HYPERTENSION
     Dosage: 50 MG, DAILY (1/D)
     Route: 048
     Dates: end: 20090320
  6. PRAZOSIN HCL [Concomitant]
     Dosage: 5 MG, DAILY (1/D)
     Route: 048
  7. CHRONADALATE [Concomitant]
     Dosage: UNK, UNKNOWN
     Route: 048
  8. FLECAINIDE ACETATE [Concomitant]
     Dosage: 100 MG, UNKNOWN
     Route: 048
  9. CORDARONE [Concomitant]
     Dosage: UNK, UNKNOWN
     Route: 047
  10. PREVISCAN [Concomitant]
     Dosage: UNK, UNKNOWN
     Route: 050
  11. DAONIL [Concomitant]
     Dosage: 5 MG, UNKNOWN
     Route: 048
  12. GLUCOPHAGE [Concomitant]
     Dosage: 1000 MG, UNKNOWN
     Route: 048

REACTIONS (6)
  - BLOOD POTASSIUM DECREASED [None]
  - BRADYCARDIA [None]
  - DRUG INTERACTION [None]
  - HAEMODIALYSIS [None]
  - HYPERKALAEMIA [None]
  - RENAL FAILURE ACUTE [None]
